FAERS Safety Report 6762962-7 (Version None)
Quarter: 2010Q2

REPORT INFORMATION
  Report Type: 
  Country: None (occurrence: None)
  Receive Date: 20100609
  Receipt Date: 20100607
  Transmission Date: 20101027
  Serious: Yes (Hospitalization)
  Sender: FDA-Public Use
  Company Number: DE-SANOFI-AVENTIS-2010SA024897

PATIENT
  Age: 71 Year
  Sex: Female
  Weight: 52 kg

DRUGS (12)
  1. ELOXATIN [Suspect]
     Indication: PANCREATIC CARCINOMA
     Route: 041
     Dates: start: 20100319, end: 20100319
  2. ELOXATIN [Suspect]
     Route: 041
     Dates: start: 20100319, end: 20100319
  3. ELOXATIN [Suspect]
     Route: 041
     Dates: start: 20100511, end: 20100511
  4. FLUOROURACIL [Suspect]
     Indication: PANCREATIC CARCINOMA
     Route: 041
     Dates: start: 20100319, end: 20100319
  5. FLUOROURACIL [Suspect]
     Route: 041
     Dates: start: 20100511, end: 20100511
  6. FOLINIC ACID [Suspect]
     Indication: PANCREATIC CARCINOMA
     Route: 041
     Dates: start: 20100319, end: 20100319
  7. FOLINIC ACID [Suspect]
     Route: 041
     Dates: start: 20100511, end: 20100511
  8. ZIPRASIDONE HCL [Concomitant]
     Route: 048
     Dates: start: 20090101
  9. CLOMIPRAMINE [Concomitant]
     Route: 048
     Dates: start: 20090101
  10. LITHIUM [Concomitant]
     Route: 048
     Dates: start: 20090101
  11. ATACAND [Concomitant]
     Route: 048
  12. PANTOZOL [Concomitant]
     Indication: PROPHYLAXIS
     Route: 048

REACTIONS (2)
  - CONDITION AGGRAVATED [None]
  - DEPRESSIVE DELUSION [None]
